FAERS Safety Report 7138483-9 (Version None)
Quarter: 2010Q4

REPORT INFORMATION
  Report Type: 
  Country: None (occurrence: None)
  Receive Date: 20101206
  Receipt Date: 20101126
  Transmission Date: 20110411
  Serious: Yes (Other)
  Sender: FDA-Public Use
  Company Number: DE-PFIZER INC-2010163025

PATIENT
  Sex: Male

DRUGS (2)
  1. PANTOZOL [Suspect]
     Dosage: UNK
  2. PANTOPRAZOLE [Suspect]
     Dosage: 20 MG, ALTERNATE DAY

REACTIONS (2)
  - MYCOSIS FUNGOIDES [None]
  - URTICARIA [None]
